FAERS Safety Report 8461730-8 (Version None)
Quarter: 2012Q2

REPORT INFORMATION
  Report Type: 
  Country: None (occurrence: None)
  Receive Date: 20120625
  Receipt Date: 20120612
  Transmission Date: 20120825
  Serious: Yes (Other)
  Sender: FDA-Public Use
  Company Number: US-JNJFOC-20120606040

PATIENT
  Sex: Female
  Weight: 65.77 kg

DRUGS (8)
  1. ORTHO EVRA [Suspect]
     Route: 062
     Dates: start: 20120604
  2. ORTHO EVRA [Suspect]
     Indication: ACNE CYSTIC
     Dosage: INITIATED ABOUT 8 YEARS AGO
     Route: 062
  3. ORTHO EVRA [Suspect]
     Route: 062
     Dates: start: 20120604
  4. DEPO-PROVERA [Suspect]
     Indication: ACNE CYSTIC
     Route: 030
     Dates: start: 20110101, end: 20120501
  5. ORTHO EVRA [Suspect]
     Indication: CONTRACEPTION
     Route: 062
     Dates: start: 20120604
  6. ORTHO EVRA [Suspect]
     Dosage: INITIATED ABOUT 8 YEARS AGO
     Route: 062
  7. ORTHO EVRA [Suspect]
     Indication: PRODUCT USED FOR UNKNOWN INDICATION
     Dosage: INITIATED ABOUT 8 YEARS AGO
     Route: 062
  8. DEPO-PROVERA [Suspect]
     Indication: CONTRACEPTION
     Route: 030
     Dates: start: 20110101, end: 20120501

REACTIONS (5)
  - DYSPNOEA [None]
  - OFF LABEL USE [None]
  - MIGRAINE WITH AURA [None]
  - MUSCULOSKELETAL PAIN [None]
  - INAPPROPRIATE SCHEDULE OF DRUG ADMINISTRATION [None]
